FAERS Safety Report 9910713 (Version 1)
Quarter: 2014Q1

REPORT INFORMATION
  Report Type: Spontaneous
  Country: US (occurrence: US)
  Receive Date: 20140219
  Receipt Date: 20140219
  Transmission Date: 20141002
  Serious: No
  Sender: FDA-Public Use
  Company Number: US-TEVA-463203USA

PATIENT
  Age: 37 Year
  Sex: Female
  Weight: 78.54 kg

DRUGS (1)
  1. PARAGARD 380A [Suspect]
     Indication: CONTRACEPTION
     Route: 015
     Dates: start: 20070615, end: 20131202

REACTIONS (2)
  - Abdominal distension [Recovered/Resolved]
  - Device breakage [Recovered/Resolved]
